FAERS Safety Report 16961805 (Version 2)
Quarter: 2019Q4

REPORT INFORMATION
  Report Type: Spontaneous
  Country: US (occurrence: US)
  Receive Date: 20191025
  Receipt Date: 20191108
  Transmission Date: 20200122
  Serious: No
  Sender: FDA-Public Use
  Company Number: US-EMD SERONO-9121879

PATIENT
  Sex: Female

DRUGS (2)
  1. AVELUMAB [Suspect]
     Active Substance: AVELUMAB
     Indication: ENDOMETRIAL CANCER
     Dates: start: 2019
  2. TALAZOPARIB. [Concomitant]
     Active Substance: TALAZOPARIB
     Indication: ENDOMETRIAL CANCER
     Dates: start: 2019

REACTIONS (1)
  - Off label use [Unknown]
